FAERS Safety Report 17373617 (Version 3)
Quarter: 2020Q1

REPORT INFORMATION
  Report Type: Report from Study
  Country: CA (occurrence: CA)
  Receive Date: 20200205
  Receipt Date: 20200327
  Transmission Date: 20200409
  Serious: Yes (Other)
  Sender: FDA-Public Use
  Company Number: CA-GLAXOSMITHKLINE-CA2020AMR017460

PATIENT
  Sex: Female

DRUGS (3)
  1. NITCONAZONE [Suspect]
     Active Substance: MICONAZOLE NITRATE
     Indication: FUNGAL RHINITIS
     Dosage: UNK
     Dates: end: 201903
  2. MEPOLIZUMAB [Suspect]
     Active Substance: MEPOLIZUMAB
     Indication: ASTHMA
     Dosage: 100 MG, Z (MONTHLY)
     Route: 042
     Dates: start: 20161221
  3. METFORMIN [Suspect]
     Active Substance: METFORMIN HYDROCHLORIDE
     Indication: DIABETES MELLITUS
     Dosage: 1 DF, QD

REACTIONS (4)
  - Polyp [Unknown]
  - Infection [Recovered/Resolved]
  - Liver disorder [Unknown]
  - Fungal rhinitis [Recovered/Resolved]
